FAERS Safety Report 8859335 (Version 1)
Quarter: 2012Q4

REPORT INFORMATION
  Report Type: 
  Country: US (occurrence: US)
  Receive Date: 20121024
  Receipt Date: 20121024
  Transmission Date: 20130627
  Serious: No
  Sender: FDA-Public Use
  Company Number: US-ASTRAZENECA-2012SE11296

PATIENT
  Age: 67 Year
  Sex: Female

DRUGS (5)
  1. TOPROL XL [Suspect]
     Indication: CARDIOVASCULAR EVENT PROPHYLAXIS
     Route: 048
  2. TOPROL XL [Suspect]
     Indication: HYPERTENSION
     Route: 048
  3. TOPROL XL [Suspect]
     Indication: CARDIOVASCULAR EVENT PROPHYLAXIS
     Route: 048
  4. CRESTOR [Suspect]
     Route: 048
  5. SYMBICORT [Concomitant]
     Dosage: 160/4.5 MCG, ONE PUFF TWICE A DAY
     Route: 055

REACTIONS (3)
  - Drug hypersensitivity [Unknown]
  - Nausea [Unknown]
  - Off label use [Unknown]
